FAERS Safety Report 5854451-9 (Version None)
Quarter: 2008Q3

REPORT INFORMATION
  Report Type: 
  Country: None (occurrence: None)
  Receive Date: 20080822
  Receipt Date: 20080811
  Transmission Date: 20090109
  Serious: Yes (Congenital Anomaly, Other)
  Sender: FDA-Public Use
  Company Number: US-PFIZER INC-2008049855

PATIENT
  Sex: Male

DRUGS (1)
  1. ZOLOFT [Suspect]
     Indication: DEPRESSION
     Route: 064

REACTIONS (10)
  - CAESAREAN SECTION [None]
  - CEREBRAL HAEMORRHAGE [None]
  - CONVULSION [None]
  - CONVULSION NEONATAL [None]
  - DEVELOPMENTAL DELAY [None]
  - DRUG EXPOSURE DURING PREGNANCY [None]
  - KIDNEY ENLARGEMENT [None]
  - OXYGEN SATURATION DECREASED [None]
  - PERSISTENT FOETAL CIRCULATION [None]
  - PNEUMONIA [None]
